FAERS Safety Report 4854467-5 (Version None)
Quarter: 2005Q4

REPORT INFORMATION
  Report Type: 
  Country: None (occurrence: None)
  Receive Date: 20051213
  Receipt Date: 20051205
  Transmission Date: 20060501
  Serious: Yes (Other)
  Sender: FDA-Public Use
  Company Number: DE200512000263

PATIENT
  Age: 10 Year
  Sex: Male
  Weight: 39 kg

DRUGS (5)
  1. STRATTERA [Suspect]
     Indication: ATTENTION DEFICIT/HYPERACTIVITY DISORDER
     Dosage: SEE IMAGE
     Route: 048
     Dates: start: 20050917, end: 20050924
  2. STRATTERA [Suspect]
     Indication: PSYCHOMOTOR HYPERACTIVITY
     Dosage: SEE IMAGE
     Route: 048
     Dates: start: 20050917, end: 20050924
  3. STRATTERA [Suspect]
     Indication: ATTENTION DEFICIT/HYPERACTIVITY DISORDER
     Dosage: SEE IMAGE
     Route: 048
     Dates: start: 20050925, end: 20050926
  4. STRATTERA [Suspect]
     Indication: PSYCHOMOTOR HYPERACTIVITY
     Dosage: SEE IMAGE
     Route: 048
     Dates: start: 20050925, end: 20050926
  5. CONCERTA [Concomitant]

REACTIONS (1)
  - SUICIDAL IDEATION [None]
